FAERS Safety Report 20622939 (Version 3)
Quarter: 2024Q2

REPORT INFORMATION
  Report Type: Report from Study
  Country: JP (occurrence: JP)
  Receive Date: 20220322
  Receipt Date: 20240517
  Transmission Date: 20240715
  Serious: Yes (Death, Other)
  Sender: FDA-Public Use
  Company Number: JP-KYOWAKIRIN-2022AKK003771

PATIENT

DRUGS (5)
  1. BUROSUMAB [Suspect]
     Active Substance: BUROSUMAB
     Indication: Hypophosphataemic osteomalacia
     Dosage: 120 MG, 1X/4 WEEKS
     Route: 058
     Dates: start: 20200514
  2. BUROSUMAB [Suspect]
     Active Substance: BUROSUMAB
     Dosage: 120 MG, 1X/4 WEEKS
     Route: 058
     Dates: start: 20200312, end: 20200409
  3. LEVOTHYROXINE SODIUM [Concomitant]
     Active Substance: LEVOTHYROXINE SODIUM
     Indication: Product used for unknown indication
     Dosage: UNK
     Route: 048
  4. PITAVASTATIN CALCIUM [Concomitant]
     Active Substance: PITAVASTATIN CALCIUM
     Indication: Product used for unknown indication
     Dosage: UNK
     Route: 048
  5. ALLOPURINOL [Concomitant]
     Active Substance: ALLOPURINOL
     Indication: Product used for unknown indication
     Dosage: UNK
     Route: 048

REACTIONS (1)
  - Death [Fatal]

NARRATIVE: CASE EVENT DATE: 20220301
